FAERS Safety Report 9586082 (Version 1)
Quarter: 2013Q4

REPORT INFORMATION
  Report Type: Report from Study
  Country: CA (occurrence: CA)
  Receive Date: 20131003
  Receipt Date: 20131003
  Transmission Date: 20140711
  Serious: Yes (Other)
  Sender: FDA-Public Use
  Company Number: CA-JNJFOC-20130917428

PATIENT
  Age: 37 Year
  Sex: Male
  Weight: 101 kg

DRUGS (5)
  1. REMICADE [Suspect]
     Indication: COLITIS ULCERATIVE
     Route: 042
     Dates: start: 20130812
  2. PURINETHOL [Concomitant]
     Route: 065
  3. PREDNISONE [Concomitant]
     Route: 065
  4. CORTIFOAM [Concomitant]
     Route: 065
  5. SALOFALK [Concomitant]
     Route: 065

REACTIONS (1)
  - Rectal haemorrhage [Recovered/Resolved]
